FAERS Safety Report 6427191-5 (Version None)
Quarter: 2009Q4

REPORT INFORMATION
  Report Type: 
  Country: None (occurrence: None)
  Receive Date: 20091104
  Receipt Date: 20091030
  Transmission Date: 20100525
  Serious: Yes (Death)
  Sender: FDA-Public Use
  Company Number: CH-SANOFI-SYNTHELABO-A01200911067

PATIENT
  Sex: Male
  Weight: 63 kg

DRUGS (5)
  1. CONCOR [Concomitant]
     Dosage: 10 MG
     Route: 048
     Dates: end: 20091026
  2. CORDARONE [Concomitant]
     Dosage: 600 MG
     Route: 042
     Dates: start: 20091019, end: 20091026
  3. MULTAQ [Suspect]
     Indication: VENTRICULAR TACHYCARDIA
     Route: 048
     Dates: start: 20091024, end: 20091026
  4. MULTAQ [Suspect]
     Route: 048
     Dates: start: 20091024, end: 20091026
  5. CORVATON RET [Concomitant]
     Dosage: 8 MG
     Route: 048
     Dates: end: 20091026

REACTIONS (2)
  - DEATH [None]
  - OFF LABEL USE [None]
